FAERS Safety Report 7055363-8 (Version None)
Quarter: 2010Q4

REPORT INFORMATION
  Report Type: 
  Country: None (occurrence: None)
  Receive Date: 20101019
  Receipt Date: 20101019
  Transmission Date: 20110411
  Serious: No
  Sender: FDA-Public Use
  Company Number: None

PATIENT
  Age: 62 Year
  Sex: Female
  Weight: 90.7194 kg

DRUGS (1)
  1. HYDROCHLOROTHIAZIDE [Suspect]
     Indication: HYPERTENSION
     Dosage: 25 MG DAILY PO
     Route: 048
     Dates: start: 20100821, end: 20101015

REACTIONS (1)
  - BLOOD CREATINE PHOSPHOKINASE INCREASED [None]
